FAERS Safety Report 6696690-3 (Version None)
Quarter: 2010Q2

REPORT INFORMATION
  Report Type: 
  Country: None (occurrence: None)
  Receive Date: 20100422
  Receipt Date: 20100409
  Transmission Date: 20101027
  Serious: Yes (Other)
  Sender: FDA-Public Use
  Company Number: 2010AL002261

PATIENT
  Sex: Male

DRUGS (4)
  1. RAMIPRIL [Suspect]
     Indication: DRUG USE FOR UNKNOWN INDICATION
  2. AMLODIPINE [Concomitant]
  3. STATIN [Concomitant]
  4. TAMSULOSIN HCL [Concomitant]

REACTIONS (11)
  - AURICULAR SWELLING [None]
  - EYE SWELLING [None]
  - INJECTION SITE SWELLING [None]
  - JOINT SWELLING [None]
  - LIP SWELLING [None]
  - LOCALISED OEDEMA [None]
  - PENILE OEDEMA [None]
  - PHARYNGEAL OEDEMA [None]
  - SOFT TISSUE DISORDER [None]
  - SWOLLEN TONGUE [None]
  - TESTICULAR SWELLING [None]
